FAERS Safety Report 9969626 (Version 1)
Quarter: 2014Q1

REPORT INFORMATION
  Report Type: Spontaneous
  Country: FR (occurrence: FR)
  Receive Date: 20140306
  Receipt Date: 20140306
  Transmission Date: 20141002
  Serious: Yes (Life-Threatening)
  Sender: FDA-Public Use
  Company Number: FR-009507513-1402FRA012376

PATIENT
  Age: 40 Year
  Sex: Male

DRUGS (1)
  1. INTRONA [Suspect]
     Indication: HEPATITIS C
     Dosage: UNK
     Route: 058
     Dates: start: 200107, end: 200307

REACTIONS (1)
  - Pulmonary arterial hypertension [Not Recovered/Not Resolved]
